FAERS Safety Report 9052299 (Version 4)
Quarter: 2013Q4

REPORT INFORMATION
  Report Type: Report from Study
  Country: DE (occurrence: DE)
  Receive Date: 20130206
  Receipt Date: 20131016
  Transmission Date: 20140711
  Serious: Yes (Hospitalization)
  Sender: FDA-Public Use
  Company Number: PHHO2013DE001579

PATIENT
  Sex: 0

DRUGS (3)
  1. ACZ885 [Suspect]
     Indication: CARDIOVASCULAR EVENT PROPHYLAXIS
     Dosage: 50 MG, UNK
     Route: 058
     Dates: start: 20121218
  2. BISOPROLOL [Suspect]
     Indication: CORONARY ARTERY DISEASE
     Dosage: 2.5 MG, BID
  3. RAMIPRIL [Concomitant]
     Indication: CORONARY ARTERY DISEASE
     Dosage: 25 MG, QD

REACTIONS (2)
  - Syncope [Recovered/Resolved]
  - Craniocerebral injury [Recovered/Resolved]
